FAERS Safety Report 3037529 (Version 3)
Quarter: 2013Q1

REPORT INFORMATION
  Report Type: Spontaneous
  Country: US (occurrence: US)
  Receive Date: 19980402
  Receipt Date: 20130221
  Transmission Date: 20140127
  Serious: Yes (Hospitalization)
  Sender: FDA-Public Use
  Company Number: 116169

PATIENT
  Age: 44 Year
  Sex: Female
  Weight: 56 kg

DRUGS (8)
  1. AVONEX [Suspect]
     Indication: MULTIPLE SCLEROSIS
     Route: 030
     Dates: start: 199612, end: 199707
  2. AVONEX [Suspect]
     Indication: MULTIPLE SCLEROSIS
     Route: 030
     Dates: start: 199708
  3. ZANAFLEX [Concomitant]
     Indication: MUSCLE SPASTICITY
  4. STEROID (NOS) [Concomitant]
     Indication: ARTHRITIS
  5. AMANTADINE [Concomitant]
     Indication: FATIGUE
  6. ZOLOFT [Concomitant]
     Indication: DEPRESSION
  7. NAPRELAN [Concomitant]
     Indication: ARTHRITIS
  8. IMURAN [Concomitant]
     Indication: MULTIPLE SCLEROSIS
     Dates: start: 1996, end: 1997

REACTIONS (15)
  - Escherichia sepsis [Recovered/Resolved]
  - Urinary tract infection [Unknown]
  - Multiple sclerosis relapse [Recovered/Resolved]
  - Dehydration [Recovered/Resolved]
  - Renal failure [Recovered/Resolved]
  - Hepatic failure [Recovered/Resolved]
  - Dry mouth [Recovered/Resolved]
  - Urinary retention [Recovered/Resolved]
  - Blood pressure increased [Recovered/Resolved]
  - Urinary incontinence [Not Recovered/Not Resolved]
  - Amenorrhoea [Not Recovered/Not Resolved]
  - Bladder disorder [Unknown]
  - Renal disorder [Unknown]
  - Asthenia [Recovered/Resolved]
  - Depression [Unknown]
